FAERS Safety Report 6560536-4 (Version None)
Quarter: 2010Q1

REPORT INFORMATION
  Report Type: 
  Country: None (occurrence: None)
  Receive Date: 20100129
  Receipt Date: 20050217
  Transmission Date: 20100710
  Serious: No
  Sender: FDA-Public Use
  Company Number: US-ALLERGAN-200502073

PATIENT
  Age: 64 Year
  Sex: Female

DRUGS (3)
  1. BOTOX [Suspect]
     Indication: SKIN WRINKLING
     Dosage: DOSE QUANTITY: 32, DOSE UNIT: UNITS
     Route: 030
     Dates: start: 20041102, end: 20041122
  2. BOTOX [Suspect]
     Dosage: 12UNITS, SINGLE
     Route: 030
     Dates: start: 20041122, end: 20041122
  3. FLU-SHOT [Concomitant]
     Indication: DRUG USE FOR UNKNOWN INDICATION
     Route: 030
     Dates: start: 20041002, end: 20041002

REACTIONS (3)
  - DRUG INEFFECTIVE [None]
  - THERAPEUTIC RESPONSE DECREASED [None]
  - WRONG TECHNIQUE IN DRUG USAGE PROCESS [None]
